FAERS Safety Report 8917302 (Version 1)
Quarter: 2012Q4

REPORT INFORMATION
  Report Type: 
  Country: US (occurrence: US)
  Receive Date: 20121120
  Receipt Date: 20121120
  Transmission Date: 20130627
  Serious: Yes (Hospitalization)
  Sender: FDA-Public Use
  Company Number: US-INCYTE CORPORATION-2012IN002354

PATIENT
  Age: 85 Year
  Sex: Male

DRUGS (1)
  1. JAKAFI [Suspect]
     Indication: MYELOFIBROSIS
     Dosage: 5 mg, bid
     Route: 048
     Dates: start: 20121104

REACTIONS (3)
  - Epistaxis [Unknown]
  - Anaemia [Unknown]
  - Platelet count decreased [Unknown]
